FAERS Safety Report 9655866 (Version 2)
Quarter: 2013Q4

REPORT INFORMATION
  Report Type: Spontaneous
  Country: SE (occurrence: SE)
  Receive Date: 20131030
  Receipt Date: 20131111
  Transmission Date: 20140711
  Serious: Yes (Hospitalization, Disabling, Other)
  Sender: FDA-Public Use
  Company Number: SE-009507513-1310SWE010984

PATIENT
  Age: 33 Year
  Sex: Female

DRUGS (12)
  1. TRILAFON [Suspect]
     Indication: PSYCHOTIC DISORDER
     Dosage: UNK
     Route: 048
     Dates: start: 2006, end: 2007
  2. TRILAFON [Suspect]
     Indication: INJURY
  3. TRILAFON [Suspect]
     Indication: OBSTRUCTION
  4. SEROQUEL [Suspect]
     Indication: PSYCHOTIC DISORDER
     Dosage: UNK
     Route: 048
     Dates: start: 2006, end: 2007
  5. SEROQUEL [Suspect]
     Indication: INJURY
  6. SEROQUEL [Suspect]
     Indication: OBSTRUCTION
  7. CISORDINOL DEPOT [Suspect]
     Indication: PSYCHOTIC DISORDER
     Dosage: STRENGTH: 200 MG/ML
     Dates: start: 2006, end: 2007
  8. CISORDINOL DEPOT [Suspect]
     Indication: INJURY
  9. CISORDINOL DEPOT [Suspect]
     Indication: OBSTRUCTION
  10. CISORDINOL ACUTARD [Suspect]
     Indication: PSYCHOTIC DISORDER
     Dosage: STRENGTH: 50 MG/ML
     Dates: start: 2006, end: 2007
  11. CISORDINOL ACUTARD [Suspect]
     Indication: INJURY
  12. CISORDINOL ACUTARD [Suspect]
     Indication: OBSTRUCTION

REACTIONS (9)
  - Acne [Recovered/Resolved]
  - Swelling [Recovered/Resolved]
  - Nodule [Recovered/Resolved]
  - Abortion spontaneous [Recovered/Resolved]
  - Weight increased [Recovered/Resolved]
  - Eczema [Recovered/Resolved]
  - Hypersensitivity [Recovered/Resolved]
  - Bone swelling [Recovered/Resolved]
  - Joint swelling [Recovered/Resolved]
